FAERS Safety Report 16973760 (Version 6)
Quarter: 2020Q4

REPORT INFORMATION
  Report Type: Spontaneous
  Country: US (occurrence: US)
  Receive Date: 20191030
  Receipt Date: 20201023
  Transmission Date: 20210113
  Serious: Yes (Other)
  Sender: FDA-Public Use
  Company Number: US-PFIZER INC-2019415512

PATIENT
  Age: 83 Year
  Sex: Female

DRUGS (4)
  1. LYRICA [Suspect]
     Active Substance: PREGABALIN
     Indication: SCIATICA
     Dosage: 75 MG, 1X/DAY(ONCE IN THE MORNING)
     Route: 048
  2. LYRICA [Suspect]
     Active Substance: PREGABALIN
     Indication: SPINAL COMPRESSION FRACTURE
     Dosage: 100 MG, 2X/DAY
  3. LYRICA [Suspect]
     Active Substance: PREGABALIN
     Indication: VERTEBRAL FORAMINAL STENOSIS
     Dosage: 100 MG, 1X/DAY [EVERY NIGHT QHS]
     Route: 048
  4. SYNTHROID [Concomitant]
     Active Substance: LEVOTHYROXINE SODIUM
     Indication: THYROID DISORDER
     Dosage: 0.75 MG, DAILY

REACTIONS (19)
  - Partial seizures [Unknown]
  - Feeling abnormal [Unknown]
  - Confusional state [Unknown]
  - Postictal state [Unknown]
  - Loss of consciousness [Unknown]
  - Brain oedema [Unknown]
  - Feeling of relaxation [Unknown]
  - Sciatica [Unknown]
  - Anxiety [Unknown]
  - Haemorrhage intracranial [Unknown]
  - Fall [Unknown]
  - Subdural haematoma [Unknown]
  - Senile dementia [Unknown]
  - Somnolence [Unknown]
  - Brain contusion [Unknown]
  - Subarachnoid haemorrhage [Unknown]
  - Skull fracture [Unknown]
  - Amnesia [Unknown]
  - Dizziness [Unknown]

NARRATIVE: CASE EVENT DATE: 20180608
